FAERS Safety Report 20527710 (Version 5)
Quarter: 2022Q1

REPORT INFORMATION
  Report Type: Spontaneous
  Country: US (occurrence: US)
  Receive Date: 20220228
  Receipt Date: 20220308
  Transmission Date: 20220424
  Serious: Yes (Other)
  Sender: FDA-Public Use
  Company Number: US-CELGENE-USA-20220206951

PATIENT
  Age: 77 Year
  Sex: Male
  Weight: 85.3 kg

DRUGS (5)
  1. ABRAXANE [Suspect]
     Active Substance: PACLITAXEL
     Indication: Cholangiocarcinoma
     Dosage: 100 MILLIGRAM/SQ. METER
     Route: 041
     Dates: start: 201912
  2. GEMCITABINE [Suspect]
     Active Substance: GEMCITABINE
     Indication: Cholangiocarcinoma
     Route: 065
     Dates: start: 202005
  3. GEMCITABINE [Suspect]
     Active Substance: GEMCITABINE
     Dosage: 800 MG/M2 ON DAYS 1 AND 8 OF 21-DAY CYCLE
     Route: 065
     Dates: start: 201912
  4. CISPLATIN [Suspect]
     Active Substance: CISPLATIN
     Indication: Cholangiocarcinoma
     Dosage: 25 MG/M2 ON DAYS 1 AND 8 OF 21-DAY CYCLE
     Route: 065
     Dates: start: 201912
  5. CISPLATIN [Suspect]
     Active Substance: CISPLATIN
     Route: 065
     Dates: start: 202005

REACTIONS (3)
  - Toxicity to various agents [Recovered/Resolved]
  - Thrombocytopenia [Recovered/Resolved]
  - Fatigue [Recovered/Resolved]

NARRATIVE: CASE EVENT DATE: 20200311
